FAERS Safety Report 9217100 (Version 1)
Quarter: 2013Q2

REPORT INFORMATION
  Report Type: Spontaneous
  Country: US (occurrence: None)
  Receive Date: 20130405
  Receipt Date: 20130405
  Transmission Date: 20140414
  Serious: Yes (Life-Threatening, Other)
  Sender: FDA-Public Use
  Company Number: None

PATIENT
  Age: 47 Year
  Sex: Female

DRUGS (2)
  1. MEANINGFUL BEAUTY ANTIOXIDANT DAY CREME SPF 20 [Suspect]
     Indication: THERAPEUTIC SKIN CARE TOPICAL
     Dosage: DERMAL
     Dates: start: 20121109, end: 20121207
  2. MEANINGFUL BEAUTY CINDY CRAWFORD SKIN BRIGHTENING DECOLLETE AND NECK TREATMENT SPF 15 [Suspect]
     Dosage: DERMAL
     Dates: start: 20121109, end: 20121207

REACTIONS (5)
  - Eye swelling [None]
  - Paraesthesia oral [None]
  - Paraesthesia oral [None]
  - Dysphagia [None]
  - Dyspnoea [None]
